FAERS Safety Report 18114268 (Version 1)
Quarter: 2020Q3

REPORT INFORMATION
  Report Type: Spontaneous
  Country: US (occurrence: US)
  Receive Date: 20200805
  Receipt Date: 20200805
  Transmission Date: 20201103
  Serious: No
  Sender: FDA-Public Use
  Company Number: None

PATIENT
  Age: 34 Year
  Sex: Female
  Weight: 61.24 kg

DRUGS (6)
  1. GUMMUNEX C [Concomitant]
  2. WELLBUTRIN [Concomitant]
     Active Substance: BUPROPION HYDROCHLORIDE
  3. PRENATAL VITAMINS [Concomitant]
     Active Substance: VITAMINS
  4. BENADRYL [Concomitant]
     Active Substance: DIPHENHYDRAMINE HYDROCHLORIDE
  5. TYLENOL [Concomitant]
     Active Substance: ACETAMINOPHEN
  6. PARAGARD T 380A [Suspect]
     Active Substance: COPPER
     Dates: start: 20200601, end: 20200805

REACTIONS (3)
  - Pain [None]
  - Discomfort [None]
  - Irritability [None]

NARRATIVE: CASE EVENT DATE: 20200601
